FAERS Safety Report 4365344-0 (Version None)
Quarter: 2004Q2

REPORT INFORMATION
  Report Type: 
  Country: None (occurrence: None)
  Receive Date: 20040520
  Receipt Date: 20040511
  Transmission Date: 20050107
  Serious: No
  Sender: FDA-Public Use
  Company Number: 04H-163-0260444-00

PATIENT
  Sex: Male

DRUGS (1)
  1. LIDOCAINE HYDROCHLORIDE 2% INJECTION (LIDOCAINE HYDROCHLORIDE) (LIDOCA [Suspect]
     Indication: ANAESTHESIA
     Dosage: 2 CC, ONCE, EPIDURAL
     Route: 008

REACTIONS (3)
  - CAUDA EQUINA SYNDROME [None]
  - HYPOAESTHESIA [None]
  - URINARY RETENTION [None]
